FAERS Safety Report 5915365-9 (Version None)
Quarter: 2008Q4

REPORT INFORMATION
  Report Type: 
  Country: None (occurrence: None)
  Receive Date: 20081010
  Receipt Date: 20081002
  Transmission Date: 20090506
  Serious: Yes (Hospitalization)
  Sender: FDA-Public Use
  Company Number: GR-EISAI MEDIAL RESEARCH-E3810-02206-SPO-GR

PATIENT
  Age: 78 Year
  Sex: Female
  Weight: 65 kg

DRUGS (2)
  1. RABEPRAZOLE SODIUM [Suspect]
     Indication: GASTRIC DISORDER
     Route: 048
     Dates: start: 20080902
  2. NEXIUM [Suspect]
     Indication: GASTRIC DISORDER
     Route: 048

REACTIONS (6)
  - ASTHENIA [None]
  - BLOOD PRESSURE INCREASED [None]
  - DYSPNOEA [None]
  - HYPERHIDROSIS [None]
  - HYPOAESTHESIA [None]
  - PALLOR [None]
